FAERS Safety Report 8357331-2 (Version None)
Quarter: 2012Q2

REPORT INFORMATION
  Report Type: 
  Country: None (occurrence: None)
  Receive Date: 20120514
  Receipt Date: 20120510
  Transmission Date: 20120825
  Serious: Yes (Hospitalization)
  Sender: FDA-Public Use
  Company Number: FR-ROCHE-1068205

PATIENT
  Age: 38 Year
  Sex: Male

DRUGS (5)
  1. CALCIUM CARBONATE [Concomitant]
     Dosage: 1 PACK IN MORNING
     Dates: start: 20120207
  2. CELLCEPT [Suspect]
     Indication: PRODUCT USED FOR UNKNOWN INDICATION
     Route: 048
     Dates: start: 20120207, end: 20120403
  3. VALGANCICLOVIR [Suspect]
     Indication: PRODUCT USED FOR UNKNOWN INDICATION
     Route: 048
     Dates: start: 20120207, end: 20120403
  4. PROGRAF [Concomitant]
     Dates: start: 20120207
  5. NEXIUM [Concomitant]
     Dosage: 1 TAB IN EVENING
     Dates: start: 20120207

REACTIONS (1)
  - AGRANULOCYTOSIS [None]
